FAERS Safety Report 5193739-4 (Version None)
Quarter: 2006Q4

REPORT INFORMATION
  Report Type: 
  Country: None (occurrence: None)
  Receive Date: 20061228
  Receipt Date: 20061227
  Transmission Date: 20070319
  Serious: Yes (Other)
  Sender: FDA-Public Use
  Company Number: US-GLAXOSMITHKLINE-A0632627A

PATIENT
  Age: 44 Year
  Sex: Female

DRUGS (3)
  1. PAXIL [Suspect]
     Indication: DEPRESSION
     Dosage: 40MG PER DAY
     Route: 048
     Dates: start: 19910101, end: 20061206
  2. TYLENOL PM [Suspect]
     Indication: SUICIDE ATTEMPT
     Dosage: 1BT SINGLE DOSE
     Route: 048
     Dates: start: 20061209, end: 20061209
  3. NO CONCURRENT MEDICATION [Concomitant]

REACTIONS (8)
  - ASTHENIA [None]
  - DIZZINESS [None]
  - EATING DISORDER [None]
  - EMOTIONAL DISTRESS [None]
  - NAUSEA [None]
  - PARAESTHESIA [None]
  - SUICIDE ATTEMPT [None]
  - WEIGHT DECREASED [None]
